FAERS Safety Report 4899172-4 (Version None)
Quarter: 2006Q1

REPORT INFORMATION
  Report Type: 
  Country: None (occurrence: None)
  Receive Date: 20060202
  Receipt Date: 20060110
  Transmission Date: 20060701
  Serious: Yes (Other)
  Sender: FDA-Public Use
  Company Number: US-SANOFI-SYNTHELABO-A03200600205

PATIENT
  Age: 64 Year
  Sex: Male

DRUGS (10)
  1. OXALIPLATIN [Suspect]
     Indication: COLON CANCER METASTATIC
     Route: 042
     Dates: start: 20060110, end: 20060110
  2. LEUCOVORIN [Suspect]
     Indication: COLON CANCER METASTATIC
     Route: 042
     Dates: end: 20060110
  3. FLUOROURACIL [Concomitant]
     Route: 042
  4. XELODA [Concomitant]
     Dosage: UNK
     Route: 048
  5. REGULAR INSULIN [Concomitant]
     Dosage: UNK
     Route: 065
  6. NPH INSULIN [Concomitant]
     Dosage: UNK
     Route: 058
  7. ACETAZOLAMIDE [Concomitant]
     Dosage: UNK
     Route: 048
  8. LOVASTATIN [Concomitant]
     Dosage: UNK
     Route: 048
  9. LASIX [Concomitant]
     Dosage: UNK
     Route: 048
  10. POTASSIUM [Concomitant]
     Dosage: UNK
     Route: 048

REACTIONS (4)
  - CONVULSION [None]
  - INCONTINENCE [None]
  - LOSS OF CONSCIOUSNESS [None]
  - RESPIRATORY RATE INCREASED [None]
